FAERS Safety Report 4521412-1 (Version None)
Quarter: 2004Q4

REPORT INFORMATION
  Report Type: 
  Country: None (occurrence: None)
  Receive Date: 20041208
  Receipt Date: 20041202
  Transmission Date: 20050328
  Serious: Yes (Hospitalization)
  Sender: FDA-Public Use
  Company Number: US-MERCK-0412USA00392

PATIENT
  Age: 57 Year
  Sex: Male

DRUGS (6)
  1. VIOXX [Suspect]
     Indication: PAIN
     Route: 048
     Dates: end: 20030101
  2. CELEBREX [Concomitant]
     Route: 065
  3. GLUCOTROL [Concomitant]
     Route: 065
  4. NORVASC [Concomitant]
     Route: 065
  5. LISINOPRIL [Concomitant]
     Route: 065
  6. PRAVACHOL [Concomitant]
     Route: 065

REACTIONS (1)
  - CARDIAC DISORDER [None]
